FAERS Safety Report 11087488 (Version 1)
Quarter: 2015Q2

REPORT INFORMATION
  Report Type: Spontaneous
  Country: AU (occurrence: None)
  Receive Date: 20150430
  Receipt Date: 20150430
  Transmission Date: 20150821
  Serious: Yes (Other)
  Sender: FDA-Public Use
  Company Number: 2015NZ002500

PATIENT
  Sex: Male

DRUGS (10)
  1. ELIGARD [Suspect]
     Active Substance: LEUPROLIDE ACETATE
     Indication: TRANSGENDER OPERATION
     Dosage: 45 MG, EVERY 6 MONTHS, UNKNOWN
  2. PREDNISOLONE. [Concomitant]
     Active Substance: PREDNISOLONE
  3. METOPROLOL [Concomitant]
     Active Substance: METOPROLOL
  4. SPAN-K (POTASSIUM CHLORIDE) [Concomitant]
  5. METOLAZONE. [Concomitant]
     Active Substance: METOLAZONE
  6. CALCIUM [Concomitant]
     Active Substance: CALCIUM
  7. TACROLIMUS. [Concomitant]
     Active Substance: TACROLIMUS
  8. MEPRAZOL (OMEPRAZOLE) [Concomitant]
  9. FRUSEMIDE [Concomitant]
     Active Substance: FUROSEMIDE
  10. MAGNESIUM [Concomitant]
     Active Substance: MAGNESIUM

REACTIONS (2)
  - Kidney transplant rejection [None]
  - Off label use [None]
